FAERS Safety Report 18371632 (Version 3)
Quarter: 2020Q4

REPORT INFORMATION
  Report Type: Spontaneous
  Country: US (occurrence: US)
  Receive Date: 20201012
  Receipt Date: 20201110
  Transmission Date: 20210114
  Serious: No
  Sender: FDA-Public Use
  Company Number: US-PFIZER INC-2020390876

PATIENT
  Age: 57 Year
  Sex: Female

DRUGS (3)
  1. XELJANZ XR [Suspect]
     Active Substance: TOFACITINIB CITRATE
     Indication: RHEUMATOID ARTHRITIS
     Dosage: 11 MG, 1X/DAY
     Route: 048
     Dates: start: 202007, end: 20201008
  2. BACLOFEN. [Concomitant]
     Active Substance: BACLOFEN
     Indication: NECK PAIN
     Dosage: 10 MG, 1X/DAY (BACLOFEN 10MG AT BEDTIME)
  3. PREDNISONE. [Concomitant]
     Active Substance: PREDNISONE
     Indication: NECK PAIN
     Dosage: 5 MG, 1X/DAY

REACTIONS (4)
  - Rash papular [Unknown]
  - Arthritis [Unknown]
  - Seborrhoea [Unknown]
  - Skin infection [Unknown]

NARRATIVE: CASE EVENT DATE: 2020
